FAERS Safety Report 8621536-3 (Version None)
Quarter: 2012Q3

REPORT INFORMATION
  Report Type: 
  Country: None (occurrence: None)
  Receive Date: 20120824
  Receipt Date: 20120820
  Transmission Date: 20120928
  Serious: Yes (Other)
  Sender: FDA-Public Use
  Company Number: JP-009507513-2012SP002322

PATIENT

DRUGS (8)
  1. PAXIL [Concomitant]
     Indication: DEPRESSION
     Dosage: 20 MG, QD
     Route: 048
     Dates: start: 20091125
  2. AMOBAN [Concomitant]
     Indication: DEPRESSION
     Dosage: 15 MG, QD
     Dates: start: 20091125
  3. INTERFERON BETA NOS [Suspect]
     Indication: HEPATITIS C
     Dosage: 6 MILLION IU, QD
     Route: 041
     Dates: start: 20110126, end: 20110209
  4. INTERFERON BETA NOS [Suspect]
     Dosage: 6 MILLION IU, TIW
     Route: 041
     Dates: start: 20110211
  5. TEPRENONE [Concomitant]
     Indication: GASTRITIS
     Dosage: 150 MG, UNK
     Dates: start: 20110127, end: 20110316
  6. RIBAVIRIN [Suspect]
     Indication: HEPATITIS C
     Dosage: 600 MG, QD 200 MG IN THE MORNING AND 400 MG IN THE EVENING
     Route: 048
     Dates: start: 20110126
  7. URSO 250 [Concomitant]
     Indication: HEPATITIS C
     Dosage: 600 MG, UNK
     Route: 048
     Dates: start: 20030328
  8. LORFENAMIN [Concomitant]
     Indication: PYREXIA
     Dosage: 60 MG, UNK
     Dates: start: 20110126, end: 20110209

REACTIONS (10)
  - LEUKOPENIA [None]
  - MONOCYTOSIS [None]
  - PYREXIA [None]
  - HYPOALBUMINAEMIA [None]
  - PROTEINURIA [None]
  - THROMBOCYTOPENIA [None]
  - NEUTROPENIA [None]
  - BLOOD LACTATE DEHYDROGENASE INCREASED [None]
  - ALANINE AMINOTRANSFERASE INCREASED [None]
  - DECREASED APPETITE [None]
